FAERS Safety Report 8592828-1 (Version None)
Quarter: 2012Q3

REPORT INFORMATION
  Report Type: 
  Country: None (occurrence: None)
  Receive Date: 20120814
  Receipt Date: 20120806
  Transmission Date: 20120928
  Serious: Yes (Other)
  Sender: FDA-Public Use
  Company Number: AU-ROCHE-1095617

PATIENT
  Sex: Female

DRUGS (11)
  1. MIRTAZAPINE [Concomitant]
  2. PREDNISOLONE [Concomitant]
     Dosage: 7.5 -10 MG
  3. FUROSEMIDE [Concomitant]
  4. CYMBALTA [Concomitant]
  5. ACTEMRA [Suspect]
     Indication: RHEUMATOID ARTHRITIS
     Dates: start: 20120622
  6. CALTRATE PLUS [Concomitant]
  7. PANTOPRAZOLE SODIUM [Concomitant]
  8. LIPITOR [Concomitant]
  9. FOSAMAX [Concomitant]
  10. FOLIC ACID [Concomitant]
  11. METHOTREXATE [Concomitant]

REACTIONS (4)
  - MOUTH ULCERATION [None]
  - PLICATED TONGUE [None]
  - ARTHRALGIA [None]
  - PAIN [None]
